FAERS Safety Report 5592628-0 (Version None)
Quarter: 2008Q1

REPORT INFORMATION
  Report Type: 
  Country: None (occurrence: None)
  Receive Date: 20080114
  Receipt Date: 20080102
  Transmission Date: 20080703
  Serious: Yes (Other)
  Sender: FDA-Public Use
  Company Number: 08-000020

PATIENT
  Age: 31 Year
  Sex: Female

DRUGS (1)
  1. DURICEF [Suspect]
     Dosage: ORAL
     Route: 048
     Dates: start: 20071126, end: 20071126

REACTIONS (4)
  - ASTHENIA [None]
  - NAUSEA [None]
  - RASH [None]
  - VOMITING [None]
